FAERS Safety Report 25067194 (Version 2)
Quarter: 2025Q1

REPORT INFORMATION
  Report Type: Spontaneous
  Country: GB (occurrence: GB)
  Receive Date: 20250312
  Receipt Date: 20250325
  Transmission Date: 20250408
  Serious: Yes (Hospitalization)
  Sender: ALKEM
  Company Number: None

PATIENT
  Age: 4 Decade
  Sex: Male

DRUGS (30)
  1. ARIPIPRAZOLE [Suspect]
     Active Substance: ARIPIPRAZOLE
     Indication: Schizophrenia
     Route: 065
     Dates: start: 20210105, end: 20210216
  2. LURASIDONE [Suspect]
     Active Substance: LURASIDONE
     Indication: Schizophrenia
     Dosage: 18.5 MILLIGRAM, OD
     Route: 065
     Dates: start: 20220324
  3. LURASIDONE [Suspect]
     Active Substance: LURASIDONE
     Dosage: 55.5 MILLIGRAM, OD
     Route: 065
     Dates: end: 20220406
  4. OLANZAPINE [Suspect]
     Active Substance: OLANZAPINE
     Indication: Schizophrenia
     Route: 065
     Dates: start: 20201201
  5. OLANZAPINE [Suspect]
     Active Substance: OLANZAPINE
     Dosage: 5 MILLIGRAM, BID
     Route: 065
     Dates: start: 20210219
  6. OLANZAPINE [Suspect]
     Active Substance: OLANZAPINE
     Route: 065
     Dates: end: 20210301
  7. QUETIAPINE FUMARATE [Suspect]
     Active Substance: QUETIAPINE FUMARATE
     Indication: Schizophrenia
     Dosage: 100 MILLIGRAM, BID (EVERY 12 HOUR) (TABLETS)
     Route: 065
     Dates: start: 20210604
  8. QUETIAPINE FUMARATE [Suspect]
     Active Substance: QUETIAPINE FUMARATE
     Dosage: 100 MILLIGRAM, BID (EVERY 12 HOUR) (TABLETS)
     Route: 065
     Dates: start: 20210625, end: 20210727
  9. QUETIAPINE FUMARATE [Suspect]
     Active Substance: QUETIAPINE FUMARATE
     Dosage: 400 MILLIGRAM, QD
     Route: 065
     Dates: start: 20211122
  10. QUETIAPINE FUMARATE [Suspect]
     Active Substance: QUETIAPINE FUMARATE
     Dosage: 200 MILLIGRAM, BID (EVERY 12 HOUR)
     Route: 065
     Dates: start: 20220314
  11. AMISULPRIDE [Suspect]
     Active Substance: AMISULPRIDE
     Indication: Schizophrenia
     Dosage: 50 MILLIGRAM, BID
     Route: 065
     Dates: start: 20210310
  12. AMISULPRIDE [Suspect]
     Active Substance: AMISULPRIDE
     Dosage: 100 MILLIGRAM, BID
     Route: 065
     Dates: start: 20210317, end: 20210421
  13. CLOZAPINE [Suspect]
     Active Substance: CLOZAPINE
     Indication: Schizophrenia
     Dosage: 200 MILLIGRAM, QD
     Route: 065
     Dates: start: 20230613
  14. CLOZAPINE [Suspect]
     Active Substance: CLOZAPINE
     Dosage: 225 MILLIGRAM, QD
     Route: 065
     Dates: start: 20240724
  15. CLOZAPINE [Suspect]
     Active Substance: CLOZAPINE
     Dosage: 350 MILLIGRAM, QD
     Route: 065
     Dates: start: 20230912
  16. CLOZAPINE [Suspect]
     Active Substance: CLOZAPINE
     Dosage: 425 MILLIGRAM, QD
     Route: 065
     Dates: start: 20240328
  17. CHLORPROMAZINE [Suspect]
     Active Substance: CHLORPROMAZINE
     Indication: Schizophrenia
     Dosage: 250 MILLIGRAM, QD
     Route: 065
     Dates: start: 20220622
  18. CHLORPROMAZINE [Suspect]
     Active Substance: CHLORPROMAZINE
     Dosage: 350 MILLIGRAM, QD
     Route: 065
     Dates: end: 20220707
  19. CHLORPROMAZINE [Suspect]
     Active Substance: CHLORPROMAZINE
     Dosage: 50 MILLIGRAM, QD
     Route: 065
     Dates: start: 20220818
  20. CHLORPROMAZINE [Suspect]
     Active Substance: CHLORPROMAZINE
     Dosage: 75 MILLIGRAM, QD
     Route: 065
     Dates: start: 20220901
  21. CHLORPROMAZINE [Suspect]
     Active Substance: CHLORPROMAZINE
     Dosage: 100 MILLIGRAM, QD
     Route: 065
     Dates: start: 20221020
  22. CHLORPROMAZINE [Suspect]
     Active Substance: CHLORPROMAZINE
     Dosage: 200 MILLIGRAM, QD
     Route: 065
     Dates: start: 20230402
  23. CHLORPROMAZINE [Suspect]
     Active Substance: CHLORPROMAZINE
     Dosage: 175 MILLIGRAM, QD
     Route: 065
     Dates: start: 20230509
  24. FLUPENTIXOL [Suspect]
     Active Substance: FLUPENTIXOL
     Indication: Schizophrenia
     Dosage: 9 MILLIGRAM, QD (PER DAY)
     Route: 048
     Dates: start: 20220124, end: 20220131
  25. ZUCLOPENTHIXOL [Suspect]
     Active Substance: ZUCLOPENTHIXOL
     Indication: Schizophrenia
     Dosage: 20 MILLIGRAM, QD
     Route: 065
     Dates: start: 20220713
  26. ZUCLOPENTHIXOL [Suspect]
     Active Substance: ZUCLOPENTHIXOL
     Dosage: 20 MILLIGRAM, QD
     Route: 065
     Dates: start: 20220719
  27. ZUCLOPENTHIXOL [Suspect]
     Active Substance: ZUCLOPENTHIXOL
     Dosage: 20 MILLIGRAM, QD
     Route: 065
     Dates: end: 20220721
  28. Carirpazine [Concomitant]
     Indication: Schizophrenia
     Dosage: 1.5 MILLIGRAM, OD
     Route: 065
     Dates: start: 20220503
  29. RISPERIDONE [Concomitant]
     Active Substance: RISPERIDONE
     Indication: Schizophrenia
     Dosage: 1 MILLIGRAM, BID
     Route: 065
     Dates: start: 20211020
  30. RISPERIDONE [Concomitant]
     Active Substance: RISPERIDONE
     Dosage: 2 MILLIGRAM, BID
     Route: 065
     Dates: start: 20211026

REACTIONS (4)
  - Blood creatine phosphokinase increased [Recovered/Resolved]
  - Tachycardia [Unknown]
  - Drug ineffective [Unknown]
  - Treatment noncompliance [Unknown]
